FAERS Safety Report 13734216 (Version 1)
Quarter: 2017Q3

REPORT INFORMATION
  Report Type: Spontaneous
  Country: IN (occurrence: IN)
  Receive Date: 20170708
  Receipt Date: 20170708
  Transmission Date: 20171127
  Serious: Yes (Death, Other)
  Sender: FDA-Public Use
  Company Number: IN-009507513-1706IND010186

PATIENT
  Age: 26 Year
  Sex: Female

DRUGS (2)
  1. TRIPTORELIN ACETATE [Concomitant]
     Active Substance: TRIPTORELIN ACETATE
     Indication: OOCYTE DONATION
     Dosage: 0.5 ML INJECTIONS
  2. GONADOTROPIN, CHORIONIC [Suspect]
     Active Substance: CHORIOGONADOTROPIN ALFA
     Indication: OOCYTE DONATION
     Dosage: 500 MG, UNK
     Route: 058

REACTIONS (1)
  - Ovarian hyperstimulation syndrome [Fatal]
